FAERS Safety Report 5855192-4 (Version None)
Quarter: 2008Q3

REPORT INFORMATION
  Report Type: 
  Country: None (occurrence: None)
  Receive Date: 20080821
  Receipt Date: 20080806
  Transmission Date: 20090109
  Serious: Yes (Other)
  Sender: FDA-Public Use
  Company Number: ALL1-2008-02024

PATIENT
  Age: 31 Year
  Sex: Male
  Weight: 126.5 kg

DRUGS (3)
  1. VYVANSE [Suspect]
     Indication: ATTENTION DEFICIT/HYPERACTIVITY DISORDER
     Dosage: 30 MG, 1X/DAY:QD, ORAL
     Route: 048
     Dates: start: 20080520, end: 20080521
  2. LEXAPRO [Concomitant]
  3. LUNESTA [Concomitant]

REACTIONS (6)
  - FALL [None]
  - HEAD INJURY [None]
  - ORTHOSTATIC HYPOTENSION [None]
  - SYNCOPE [None]
  - TACHYCARDIA [None]
  - VIRAL INFECTION [None]
